FAERS Safety Report 5309978-5 (Version None)
Quarter: 2007Q2

REPORT INFORMATION
  Report Type: 
  Country: None (occurrence: None)
  Receive Date: 20070427
  Receipt Date: 20070418
  Transmission Date: 20071010
  Serious: Yes (Hospitalization, Disabling)
  Sender: FDA-Public Use
  Company Number: 2007PK00859

PATIENT
  Age: 480 Month
  Sex: Male
  Weight: 71 kg

DRUGS (2)
  1. ENTOCORT [Suspect]
     Indication: CROHN'S DISEASE
     Dosage: 3 MG IN THE MORNING
     Route: 048
     Dates: start: 20041101, end: 20060401
  2. THYREX [Concomitant]
     Indication: HYPOTHYROIDISM
     Route: 048
     Dates: start: 20030101

REACTIONS (1)
  - OSTEONECROSIS [None]
